FAERS Safety Report 24718025 (Version 2)
Quarter: 2025Q1

REPORT INFORMATION
  Report Type: Report from Study
  Country: US (occurrence: US)
  Receive Date: 20241210
  Receipt Date: 20250218
  Transmission Date: 20250408
  Serious: Yes (Hospitalization)
  Sender: NOVARTIS
  Company Number: US-002147023-NVSC2024US233967

PATIENT
  Sex: Male

DRUGS (1)
  1. KESIMPTA [Suspect]
     Active Substance: OFATUMUMAB
     Indication: Multiple sclerosis
     Dosage: 20 MG, QMO
     Route: 058

REACTIONS (5)
  - Gastrointestinal haemorrhage [Unknown]
  - Lethargy [Recovering/Resolving]
  - Somnolence [Unknown]
  - Fatigue [Unknown]
  - Dyspnoea [Unknown]
